FAERS Safety Report 10221490 (Version 2)
Quarter: 2014Q2

REPORT INFORMATION
  Report Type: Spontaneous
  Country: DE (occurrence: DE)
  Receive Date: 20140606
  Receipt Date: 20140606
  Transmission Date: 20141212
  Serious: Yes (Other)
  Sender: FDA-Public Use
  Company Number: DE-009507513-1312DEU006322

PATIENT
  Sex: Male

DRUGS (7)
  1. RIBAVIRIN [Suspect]
     Dosage: 600 MG, WEEKLY (WEEK 1-4)
  2. RIBAVIRIN [Suspect]
     Dosage: 1400 MG WEEKLY (WEEK 5-6)
  3. RIBAVIRIN [Suspect]
     Dosage: 400-600MG WEEKLY DOSAGE(WEEK 7-47)
  4. PEGINTERFERON ALFA-2A [Suspect]
     Dosage: 135 MICROGRAM, UNK
  5. TELAPREVIR [Suspect]
     Indication: CHRONIC HEPATITIS C
     Dosage: 2250 MG, QD
  6. EPOETIN [Suspect]
     Indication: CHRONIC HEPATITIS C
     Dosage: 24,000 IU/WEEK (WEEK 1-47)
  7. EPOETIN [Suspect]
     Indication: HAEMODIALYSIS

REACTIONS (3)
  - Viral infection [Unknown]
  - Cerebrovascular accident [Unknown]
  - Anaemia [Unknown]
